FAERS Safety Report 5835747-3 (Version None)
Quarter: 2008Q3

REPORT INFORMATION
  Report Type: 
  Country: None (occurrence: None)
  Receive Date: 20080725
  Receipt Date: 20080603
  Transmission Date: 20090109
  Serious: Yes (Other)
  Sender: FDA-Public Use
  Company Number: 49019

PATIENT
  Sex: Female

DRUGS (1)
  1. ETOPOSIDE [Suspect]
     Indication: HODGKIN'S DISEASE
     Dosage: 223MG IV
     Route: 042
     Dates: start: 20080517

REACTIONS (2)
  - ANAPHYLACTIC REACTION [None]
  - ANAPHYLACTOID REACTION [None]
